FAERS Safety Report 5939432-9 (Version None)
Quarter: 2008Q4

REPORT INFORMATION
  Report Type: 
  Country: None (occurrence: None)
  Receive Date: 20081103
  Receipt Date: 20081021
  Transmission Date: 20090506
  Serious: Yes (Other)
  Sender: FDA-Public Use
  Company Number: CA-ELI_LILLY_AND_COMPANY-CA200810005267

PATIENT
  Age: 67 Year
  Sex: Female

DRUGS (7)
  1. FORTEO [Suspect]
     Indication: OSTEOPOROSIS
     Dosage: 20 UG, DAILY (1/D)
     Route: 058
     Dates: start: 20070314, end: 20080916
  2. ASPIRIN [Concomitant]
     Dosage: 81 MG, DAILY (1/D)
     Dates: end: 20080916
  3. CALCIUM [Concomitant]
  4. VITAMIN D [Concomitant]
  5. MAGNESIUM SULFATE [Concomitant]
  6. MULTI-VITAMIN [Concomitant]
  7. DIOVAN [Concomitant]
     Dosage: 80 MG, DAILY (1/D)
     Dates: end: 20080916

REACTIONS (6)
  - DYSPNOEA [None]
  - HEART RATE INCREASED [None]
  - HEART RATE IRREGULAR [None]
  - HYPERHIDROSIS [None]
  - PAIN [None]
  - PLEURAL EFFUSION [None]
